FAERS Safety Report 25192075 (Version 1)
Quarter: 2025Q2

REPORT INFORMATION
  Report Type: Spontaneous
  Country: FR (occurrence: FR)
  Receive Date: 20250414
  Receipt Date: 20250414
  Transmission Date: 20250716
  Serious: Yes (Other)
  Sender: MYLAN
  Company Number: None

PATIENT
  Age: 33 Year
  Sex: Male
  Weight: 72 kg

DRUGS (12)
  1. FENTANYL [Suspect]
     Active Substance: FENTANYL
     Indication: Pain
     Dosage: 50 MICROGRAM, QH
     Dates: start: 20250316, end: 20250318
  2. PROPOFOL [Suspect]
     Active Substance: PROPOFOL
     Indication: Anaesthesia
     Dosage: 40 MILLIGRAM, QH
     Dates: start: 20250317, end: 20250317
  3. CISATRACURIUM [Suspect]
     Active Substance: CISATRACURIUM
     Indication: Anaesthesia
     Dosage: 12 MILLIGRAM, QH
     Dates: start: 20250316, end: 20250317
  4. MIDAZOLAM [Suspect]
     Active Substance: MIDAZOLAM
     Indication: Anaesthesia
     Dosage: 3 MILLIGRAM, QH
     Dates: start: 20250316, end: 20250318
  5. NOREPINEPHRINE [Suspect]
     Active Substance: NOREPINEPHRINE
     Indication: Anaesthesia
     Dosage: 1 MILLIGRAM, QH
     Dates: start: 20250316, end: 20250317
  6. NEFOPAM [Suspect]
     Active Substance: NEFOPAM
     Indication: Pain
     Dates: start: 20250317, end: 20250318
  7. ENOXAPARIN SODIUM [Suspect]
     Active Substance: ENOXAPARIN SODIUM
     Indication: Prophylaxis
     Dosage: 4000 INTERNATIONAL UNIT, QD
     Dates: start: 20250317, end: 20250324
  8. ACETAMINOPHEN [Suspect]
     Active Substance: ACETAMINOPHEN
     Indication: Prophylaxis
     Dosage: 1000 MILLIGRAM, Q8H
     Dates: start: 20250317, end: 20250321
  9. MORPHINE HYDROCHLORIDE [Suspect]
     Active Substance: MORPHINE HYDROCHLORIDE
     Indication: Pain
     Dosage: 4 MILLIGRAM, Q4H
     Dates: start: 20250317, end: 20250317
  10. VITAMIN K [Suspect]
     Active Substance: PHYTONADIONE
     Indication: Coagulation factor V level decreased
     Dates: start: 20250318, end: 20250318
  11. POTASSIUM GLUCONATE [Suspect]
     Active Substance: POTASSIUM GLUCONATE
     Indication: Hypokalaemia
     Dates: start: 20250319, end: 20250319
  12. HUMALOG [Suspect]
     Active Substance: INSULIN LISPRO
     Indication: Product used for unknown indication
     Dosage: 2 INTERNATIONAL UNIT, QH
     Dates: start: 20250319, end: 20250320

REACTIONS (1)
  - Pancreatitis acute [Recovering/Resolving]

NARRATIVE: CASE EVENT DATE: 20250319
